FAERS Safety Report 11149264 (Version 1)
Quarter: 2015Q2

REPORT INFORMATION
  Report Type: Spontaneous
  Country: BR (occurrence: None)
  Receive Date: 20150527
  Receipt Date: 20150527
  Transmission Date: 20150821
  Serious: Yes (Hospitalization)
  Sender: FDA-Public Use
  Company Number: FK201502340

PATIENT
  Age: 44 Week
  Sex: Female

DRUGS (2)
  1. MIDAZOLAM [Suspect]
     Active Substance: MIDAZOLAM\MIDAZOLAM HYDROCHLORIDE
     Indication: SEDATION
     Dosage: 1 IN 1 (NOT OTHERWISE SPECIFIED)
     Route: 042
  2. PHENOBARBITAL (PHENOBARBITAL) [Concomitant]
     Active Substance: PHENOBARBITAL

REACTIONS (4)
  - Seizure [None]
  - Microcephaly [None]
  - Hypertonia [None]
  - Hyperreflexia [None]
